FAERS Safety Report 22815191 (Version 3)
Quarter: 2023Q4

REPORT INFORMATION
  Report Type: Spontaneous
  Country: US (occurrence: US)
  Receive Date: 20230811
  Receipt Date: 20231221
  Transmission Date: 20240110
  Serious: Yes (Other)
  Sender: FDA-Public Use
  Company Number: US-PFIZER INC-PV202300138498

PATIENT
  Age: 70 Year
  Sex: Female
  Weight: 64.7 kg

DRUGS (6)
  1. IBRANCE [Suspect]
     Active Substance: PALBOCICLIB
     Indication: Breast cancer female
     Dosage: 125 MG, CYCLIC ((1 (ONE) TIME EACH DAY FOR 21 DAYS. THEN TAKE 7 DAYS OFF)
     Route: 048
     Dates: start: 20230801
  2. IBRANCE [Suspect]
     Active Substance: PALBOCICLIB
     Indication: Hormone receptor positive breast cancer
     Dosage: 125 MG, CYCLIC (TAKE 125 MG CAPSULE PO DAILY FOR 21 DAYS. TAKE 7 DAYS OFF. REPEAT CYCLE Q 28 DAYS)
     Route: 048
  3. IBRANCE [Suspect]
     Active Substance: PALBOCICLIB
     Indication: Metastases to bone
  4. CLINDAMYCIN HYDROCHLORIDE [Concomitant]
     Active Substance: CLINDAMYCIN HYDROCHLORIDE
     Dosage: 300 MG, 3X/DAY (TAKE 1 CAPSULE (300 MG TOTAL) BY MOUTH 3 (THREE) TIMES PER DAY)
     Route: 048
  5. AZULFIDINE [Concomitant]
     Active Substance: SULFASALAZINE
     Dosage: 500 MG, 2X/DAY (TAKE 1 TABLET (500 MG TOTAL) BY MOUTH 2 (TWO) TIMES PER DAY) PRN
     Route: 048
  6. NEURONTIN [Concomitant]
     Active Substance: GABAPENTIN
     Dosage: 600 MG, 3X/DAY (TAKE 2 CAPSULES (600 MG TOTAL) BY MOUTH 3 (THREE) TIMES PER DAY)
     Route: 048

REACTIONS (2)
  - Neutropenia [Unknown]
  - Ankylosing spondylitis [Not Recovered/Not Resolved]

NARRATIVE: CASE EVENT DATE: 20230801
